FAERS Safety Report 9292660 (Version 1)
Quarter: 2013Q2

REPORT INFORMATION
  Report Type: Spontaneous
  Country: BR (occurrence: BR)
  Receive Date: 20130516
  Receipt Date: 20130516
  Transmission Date: 20140414
  Serious: Yes (Hospitalization, Other)
  Sender: FDA-Public Use
  Company Number: BR-009507513-1305BRA009162

PATIENT
  Age: 87 Year
  Sex: Female
  Weight: 55 kg

DRUGS (1)
  1. ZENHALE [Suspect]
     Indication: DYSPNOEA
     Dosage: UNK MICROGRAM, QD
     Route: 055
     Dates: start: 2011

REACTIONS (7)
  - Pulmonary embolism [Not Recovered/Not Resolved]
  - Blood pressure abnormal [Not Recovered/Not Resolved]
  - Pulmonary hypertension [Not Recovered/Not Resolved]
  - Product quality issue [Unknown]
  - Drug administration error [Unknown]
  - Product quality issue [Unknown]
  - Off label use [Unknown]
